FAERS Safety Report 18131797 (Version 3)
Quarter: 2020Q4

REPORT INFORMATION
  Report Type: Report from Study
  Country: None (occurrence: US)
  Receive Date: 20200810
  Receipt Date: 20201013
  Transmission Date: 20210113
  Serious: Yes (Other)
  Sender: FDA-Public Use
  Company Number: US-ABBVIE-20K-163-3456347-00

PATIENT
  Sex: Female
  Weight: 81.72 kg

DRUGS (2)
  1. HUMIRA [Suspect]
     Active Substance: ADALIMUMAB
     Indication: RHEUMATOID ARTHRITIS
     Dosage: CITRATE FREE
     Route: 058
     Dates: end: 2020
  2. HUMIRA [Suspect]
     Active Substance: ADALIMUMAB
     Dosage: CITRATE FREE
     Route: 058
     Dates: start: 2020

REACTIONS (10)
  - Spinal fracture [Unknown]
  - Fatigue [Unknown]
  - Vomiting [Unknown]
  - Intervertebral disc protrusion [Not Recovered/Not Resolved]
  - Malaise [Unknown]
  - Therapeutic product effect decreased [Unknown]
  - Spondylitis [Unknown]
  - Spinal stenosis [Not Recovered/Not Resolved]
  - Rheumatoid arthritis [Unknown]
  - Nerve block [Not Recovered/Not Resolved]
